FAERS Safety Report 19269915 (Version 1)
Quarter: 2021Q2

REPORT INFORMATION
  Report Type: Report from Study
  Country: DE (occurrence: DE)
  Receive Date: 20210518
  Receipt Date: 20210518
  Transmission Date: 20210717
  Serious: Yes (Hospitalization)
  Sender: FDA-Public Use
  Company Number: DE-MYLANLABS-2021M1028904

PATIENT
  Age: 58 Year
  Sex: Male

DRUGS (6)
  1. FLUOROURACIL. [Suspect]
     Active Substance: FLUOROURACIL
     Indication: ADENOCARCINOMA OF COLON
     Route: 065
     Dates: start: 2019
  2. OXALIPLATIN. [Suspect]
     Active Substance: OXALIPLATIN
     Indication: ADENOCARCINOMA OF COLON
     Route: 065
     Dates: start: 2019
  3. FLUOROURACIL. [Suspect]
     Active Substance: FLUOROURACIL
     Indication: DISEASE PROGRESSION
  4. FOLINIC ACID [Suspect]
     Active Substance: LEUCOVORIN
     Indication: DISEASE PROGRESSION
  5. FOLINIC ACID [Suspect]
     Active Substance: LEUCOVORIN
     Indication: ADENOCARCINOMA OF COLON
     Route: 065
     Dates: start: 2019
  6. OXALIPLATIN. [Suspect]
     Active Substance: OXALIPLATIN
     Indication: DISEASE PROGRESSION

REACTIONS (1)
  - Drug ineffective [Unknown]

NARRATIVE: CASE EVENT DATE: 2019
